FAERS Safety Report 7961139-7 (Version None)
Quarter: 2011Q4

REPORT INFORMATION
  Report Type: 
  Country: None (occurrence: None)
  Receive Date: 20111207
  Receipt Date: 20111204
  Transmission Date: 20120403
  Serious: Yes (Other)
  Sender: FDA-Public Use
  Company Number: BR-PFIZER INC-2011263436

PATIENT
  Sex: Female

DRUGS (1)
  1. LYRICA [Suspect]
     Dosage: 75 MG
     Route: 048

REACTIONS (5)
  - GASTROINTESTINAL HAEMORRHAGE [None]
  - INFLAMMATION [None]
  - HAEMORRHAGE [None]
  - EPISTAXIS [None]
  - CONSTIPATION [None]
